FAERS Safety Report 6755756-X (Version None)
Quarter: 2010Q2

REPORT INFORMATION
  Report Type: 
  Country: None (occurrence: None)
  Receive Date: 20100604
  Receipt Date: 20100528
  Transmission Date: 20101027
  Serious: Yes (Disabling, Other)
  Sender: FDA-Public Use
  Company Number: FR-JNJFOC-20100510443

PATIENT
  Age: 57 Year
  Sex: Female

DRUGS (3)
  1. TAVANIC [Suspect]
     Indication: LUNG DISORDER
     Route: 048
  2. TAVANIC [Suspect]
     Route: 048
  3. ROCEPHIN [Concomitant]
     Route: 065

REACTIONS (10)
  - ARTHRALGIA [None]
  - BURNING SENSATION [None]
  - LYMPHOCYTE COUNT INCREASED [None]
  - NEUTROPHIL COUNT DECREASED [None]
  - PYREXIA [None]
  - RASH [None]
  - SKIN EXFOLIATION [None]
  - TENDON DISORDER [None]
  - TENDON PAIN [None]
  - VAGINAL ULCERATION [None]
